FAERS Safety Report 21658155 (Version 1)
Quarter: 2022Q4

REPORT INFORMATION
  Report Type: Spontaneous
  Country: US (occurrence: None)
  Receive Date: 20221128
  Receipt Date: 20221128
  Transmission Date: 20230113
  Serious: No
  Sender: FDA-Public Use
  Company Number: None

PATIENT
  Age: 27 Year
  Sex: Female
  Weight: 46.67 kg

DRUGS (8)
  1. WELIREG [Suspect]
     Active Substance: BELZUTIFAN
     Indication: Brain neoplasm
     Dosage: FREQUENCY : DAILY;?
     Route: 048
  2. ESCITALOPRAM [Concomitant]
  3. FAMOTIDINE [Concomitant]
  4. GABAPENTIN [Concomitant]
  5. LIDOCAINE [Concomitant]
  6. MULTIVITAMINS [Concomitant]
  7. NEXPLANON [Concomitant]
     Active Substance: ETONOGESTREL
  8. ZOFRAN [Concomitant]

REACTIONS (1)
  - COVID-19 [None]
